FAERS Safety Report 24953751 (Version 2)
Quarter: 2025Q3

REPORT INFORMATION
  Report Type: Spontaneous
  Country: EU (occurrence: EU)
  Receive Date: 20250211
  Receipt Date: 20250810
  Transmission Date: 20251020
  Serious: Yes (Life-Threatening, Hospitalization, Other)
  Sender: ALEXION PHARMACEUTICALS
  Company Number: EU-ASTRAZENECA-202502GLO005483ES

PATIENT
  Age: 29 Year
  Sex: Female

DRUGS (11)
  1. QUETIAPINE FUMARATE [Suspect]
     Active Substance: QUETIAPINE FUMARATE
     Indication: Suicide attempt
     Dates: start: 20241020, end: 20241020
  2. QUETIAPINE FUMARATE [Suspect]
     Active Substance: QUETIAPINE FUMARATE
  3. CLONAZEPAM [Suspect]
     Active Substance: CLONAZEPAM
     Indication: Suicide attempt
     Dates: start: 20241020, end: 20241020
  4. CLONAZEPAM [Suspect]
     Active Substance: CLONAZEPAM
  5. DULOXETINE [Suspect]
     Active Substance: DULOXETINE
     Indication: Suicide attempt
     Dates: start: 20241020, end: 20241020
  6. DULOXETINE [Suspect]
     Active Substance: DULOXETINE
     Dosage: 600 MILLIGRAM, Q8H
  7. CARIPRAZINE [Suspect]
     Active Substance: CARIPRAZINE
     Indication: Suicide attempt
     Dates: start: 20241020, end: 20241020
  8. CLORAZEPATE DIPOTASSIUM [Suspect]
     Active Substance: CLORAZEPATE DIPOTASSIUM
     Indication: Suicide attempt
     Dates: start: 20241020, end: 20241020
  9. CLORAZEPATE DIPOTASSIUM [Suspect]
     Active Substance: CLORAZEPATE DIPOTASSIUM
     Dosage: 5 MILLIGRAM, Q8H
  10. TRAZODONE [Suspect]
     Active Substance: TRAZODONE HYDROCHLORIDE
     Indication: Suicide attempt
     Dates: start: 20241020, end: 20241020
  11. TRAZODONE [Suspect]
     Active Substance: TRAZODONE HYDROCHLORIDE

REACTIONS (6)
  - Depressed level of consciousness [Recovered/Resolved]
  - Respiratory depression [Recovered/Resolved]
  - Suicide attempt [Unknown]
  - Pneumonia aspiration [Recovered/Resolved]
  - Acute kidney injury [Unknown]
  - Agitation [Unknown]

NARRATIVE: CASE EVENT DATE: 20241020
